FAERS Safety Report 5218819-6 (Version None)
Quarter: 2007Q1

REPORT INFORMATION
  Report Type: 
  Country: None (occurrence: None)
  Receive Date: 20070122
  Receipt Date: 20070122
  Transmission Date: 20070707
  Serious: Yes (Other)
  Sender: FDA-Public Use
  Company Number: None

PATIENT
  Age: 75 Year
  Sex: Female
  Weight: 63.5036 kg

DRUGS (1)
  1. FOSAMAX [Suspect]
     Indication: OSTEOPOROSIS
     Dosage: 1 TABLET  ONCE A WEEK  AM
     Dates: start: 20060901

REACTIONS (9)
  - ANAL HAEMORRHAGE [None]
  - ARTHRALGIA [None]
  - CONSTIPATION [None]
  - DYSPEPSIA [None]
  - HEADACHE [None]
  - HOT FLUSH [None]
  - OEDEMA PERIPHERAL [None]
  - PARAESTHESIA [None]
  - TINNITUS [None]
